FAERS Safety Report 4634668-1 (Version None)
Quarter: 2005Q2

REPORT INFORMATION
  Report Type: 
  Country: None (occurrence: None)
  Receive Date: 20050413
  Receipt Date: 20050404
  Transmission Date: 20051028
  Serious: Yes (Death)
  Sender: FDA-Public Use
  Company Number: DEU-2005-0001342

PATIENT
  Age: 46 Year
  Sex: Female
  Weight: 81 kg

DRUGS (10)
  1. OXY CR TAB 20 MG (OXY CR TAB 20 MG)(OXYCODONE HYDROCHLORIDE) CR TABLET [Suspect]
     Indication: PAIN
     Dosage: SEE IMAGE
     Route: 048
     Dates: start: 20040708, end: 20040714
  2. OXY CR TAB 20 MG (OXY CR TAB 20 MG)(OXYCODONE HYDROCHLORIDE) CR TABLET [Suspect]
     Indication: PAIN
     Dosage: SEE IMAGE
     Route: 048
     Dates: end: 20050126
  3. OXY CR TAB 20 MG (OXY CR TAB 20 MG)(OXYCODONE HYDROCHLORIDE) CR TABLET [Suspect]
     Indication: PAIN
     Dosage: SEE IMAGE
     Route: 048
     Dates: start: 20040715
  4. VIOXX [Concomitant]
  5. ATENOLOL [Concomitant]
  6. EFEROX ^HEXAL^ (LEVOTHYROXINE SODIUM) [Concomitant]
  7. ACETAMINOPHEN [Concomitant]
  8. DOXEPIN HYDROCHLORIDE (DOXEPIN HYDROCHLORIDE) [Concomitant]
  9. METAMIZOLE SODIUM [Concomitant]
  10. DULCOLAX [Concomitant]

REACTIONS (1)
  - DEATH [None]
